FAERS Safety Report 7458862-X (Version None)
Quarter: 2011Q2

REPORT INFORMATION
  Report Type: 
  Country: None (occurrence: None)
  Receive Date: 20110504
  Receipt Date: 20110426
  Transmission Date: 20111010
  Serious: Yes (Other)
  Sender: FDA-Public Use
  Company Number: US-CEPHALON-2010002804

PATIENT
  Sex: Female

DRUGS (1)
  1. NUVIGIL [Suspect]
     Indication: SOMNOLENCE
     Route: 048
     Dates: end: 20100422

REACTIONS (10)
  - TONGUE BLISTERING [None]
  - LIP SWELLING [None]
  - PARAESTHESIA ORAL [None]
  - ASTHENIA [None]
  - DYSPNOEA [None]
  - ATELECTASIS [None]
  - STOMATITIS [None]
  - OEDEMA MOUTH [None]
  - SWOLLEN TONGUE [None]
  - DRUG PRESCRIBING ERROR [None]
